FAERS Safety Report 9009782 (Version 2)
Quarter: 2013Q1

REPORT INFORMATION
  Report Type: Report from Study
  Country: US (occurrence: US)
  Receive Date: 20130110
  Receipt Date: 20130208
  Transmission Date: 20140127
  Serious: Yes (Other)
  Sender: FDA-Public Use
  Company Number: US-BAYER-2012-132479

PATIENT
  Age: 47 Year
  Sex: Male

DRUGS (3)
  1. STIVARGA [Suspect]
     Indication: COLON CANCER
     Dosage: DAILY DOSE 80 MG
     Route: 048
     Dates: start: 20121206, end: 20121208
  2. STIVARGA [Suspect]
     Indication: COLON CANCER
     Dosage: 4 DF, QD
     Route: 048
     Dates: start: 20121209, end: 20121226
  3. STIVARGA [Suspect]
     Indication: COLON CANCER
     Dosage: 120 MG, QD
     Route: 048
     Dates: start: 20130117, end: 20130128

REACTIONS (3)
  - Blister [Recovering/Resolving]
  - Dysphonia [None]
  - Genital lesion [Not Recovered/Not Resolved]
